FAERS Safety Report 7612352-X (Version None)
Quarter: 2011Q3

REPORT INFORMATION
  Report Type: 
  Country: None (occurrence: None)
  Receive Date: 20110715
  Receipt Date: 20110706
  Transmission Date: 20111222
  Serious: Yes (Other)
  Sender: FDA-Public Use
  Company Number: US-ASTRAZENECA-2011SE40565

PATIENT
  Age: 65 Year
  Sex: Female

DRUGS (2)
  1. TOPROL-XL [Suspect]
     Route: 048
  2. METFORMIN HCL [Concomitant]

REACTIONS (2)
  - FEELING ABNORMAL [None]
  - BLOOD GLUCOSE INCREASED [None]
